FAERS Safety Report 6670386-6 (Version None)
Quarter: 2010Q2

REPORT INFORMATION
  Report Type: 
  Country: None (occurrence: None)
  Receive Date: 20100407
  Receipt Date: 20100329
  Transmission Date: 20101027
  Serious: Yes (Hospitalization)
  Sender: FDA-Public Use
  Company Number: US-BIOGENIDEC-2010BI010568

PATIENT
  Age: 37 Year
  Sex: Female

DRUGS (2)
  1. TYSABRI [Suspect]
     Indication: MULTIPLE SCLEROSIS
     Route: 042
     Dates: start: 20070619, end: 20081022
  2. TYSABRI [Suspect]
     Route: 042
     Dates: start: 20090204

REACTIONS (2)
  - MULTIPLE SCLEROSIS RELAPSE [None]
  - PARALYSIS [None]
